FAERS Safety Report 7798317-6 (Version None)
Quarter: 2011Q4

REPORT INFORMATION
  Report Type: 
  Country: None (occurrence: None)
  Receive Date: 20111005
  Receipt Date: 20110930
  Transmission Date: 20120403
  Serious: Yes (Hospitalization)
  Sender: FDA-Public Use
  Company Number: US-CEPHALON-2011005193

PATIENT
  Sex: Male

DRUGS (2)
  1. TREANDA [Suspect]
     Indication: MULTIPLE MYELOMA
     Route: 042
  2. VELCADE [Concomitant]
     Indication: MULTIPLE MYELOMA

REACTIONS (1)
  - ARRHYTHMIA SUPRAVENTRICULAR [None]
